FAERS Safety Report 7298821-3 (Version None)
Quarter: 2011Q1

REPORT INFORMATION
  Report Type: 
  Country: None (occurrence: None)
  Receive Date: 20110217
  Receipt Date: 20110211
  Transmission Date: 20110831
  Serious: Yes (Other)
  Sender: FDA-Public Use
  Company Number: CA-JNJFOC-20110204486

PATIENT
  Sex: Male
  Weight: 75.5 kg

DRUGS (5)
  1. BENADRYL [Concomitant]
     Indication: PREMEDICATION
     Route: 042
  2. INSULIN [Concomitant]
     Indication: DIABETES MELLITUS
  3. CRESTOR [Concomitant]
  4. REMICADE [Suspect]
     Indication: CROHN'S DISEASE
     Route: 042
  5. HYDROCORTISONE [Concomitant]
     Indication: PREMEDICATION
     Route: 042

REACTIONS (7)
  - EUPHORIC MOOD [None]
  - ASTHENIA [None]
  - INFUSION RELATED REACTION [None]
  - ERYTHEMA [None]
  - PARAESTHESIA [None]
  - HYPERGLYCAEMIA [None]
  - FATIGUE [None]
